FAERS Safety Report 9687009 (Version 1)
Quarter: 2013Q4

REPORT INFORMATION
  Report Type: Spontaneous
  Country: GB (occurrence: GB)
  Receive Date: 20131113
  Receipt Date: 20131113
  Transmission Date: 20140711
  Serious: Yes (Other)
  Sender: FDA-Public Use
  Company Number: PHHY2013GB127206

PATIENT
  Age: 46 Year
  Sex: Female
  Weight: 57.15 kg

DRUGS (4)
  1. CLARITHROMYCIN [Suspect]
     Indication: HELICOBACTER INFECTION
     Dosage: 500 MG, UNK
     Route: 048
     Dates: start: 20131020, end: 20131025
  2. METRONIDAZOLE [Concomitant]
  3. THYROXINE [Concomitant]
     Dosage: 225 UG, UNK
  4. NEXIUM [Concomitant]
     Dosage: 20 MG, UNK

REACTIONS (9)
  - Pain in extremity [Unknown]
  - Panic attack [Recovering/Resolving]
  - Muscle twitching [Unknown]
  - Feeling abnormal [Unknown]
  - Hallucination [Recovered/Resolved]
  - Anxiety [Recovering/Resolving]
  - Chest pain [Recovering/Resolving]
  - Malaise [Recovering/Resolving]
  - Insomnia [Recovered/Resolved]
